FAERS Safety Report 18061686 (Version 2)
Quarter: 2020Q3

REPORT INFORMATION
  Report Type: Spontaneous
  Country: JP (occurrence: JP)
  Receive Date: 20200723
  Receipt Date: 20200827
  Transmission Date: 20201103
  Serious: Yes (Death)
  Sender: FDA-Public Use
  Company Number: JP-ELI_LILLY_AND_COMPANY-JP202007008694

PATIENT
  Age: 70 Year
  Sex: Female

DRUGS (4)
  1. OPSUMIT [Concomitant]
     Active Substance: MACITENTAN
     Indication: PRODUCT USED FOR UNKNOWN INDICATION
     Dosage: 10 MG, DAILY
     Route: 048
     Dates: start: 20200706, end: 20200715
  2. EPOPROSTENOL [EPOPROSTENOL SODIUM] [Concomitant]
     Active Substance: EPOPROSTENOL SODIUM
     Indication: PRODUCT USED FOR UNKNOWN INDICATION
     Dosage: UNK
     Route: 048
  3. FUROSEMIDE. [Concomitant]
     Active Substance: FUROSEMIDE
     Indication: PRODUCT USED FOR UNKNOWN INDICATION
  4. ADCIRCA [Suspect]
     Active Substance: TADALAFIL
     Indication: LEFT VENTRICULAR FAILURE
     Dosage: 40 MG, DAILY
     Route: 048
     Dates: start: 20200708, end: 20200715

REACTIONS (2)
  - Off label use [Unknown]
  - Septic shock [Fatal]

NARRATIVE: CASE EVENT DATE: 20200708
